FAERS Safety Report 6259288-7 (Version None)
Quarter: 2009Q3

REPORT INFORMATION
  Report Type: 
  Country: None (occurrence: None)
  Receive Date: 20090707
  Receipt Date: 20090625
  Transmission Date: 20100115
  Serious: Yes (Other)
  Sender: FDA-Public Use
  Company Number: PHHY2009JP27258

PATIENT
  Sex: Female

DRUGS (1)
  1. NEORAL [Suspect]
     Dosage: FOETAL DRUG EXPOSURE VIA THE FATHER

REACTIONS (2)
  - ABORTION [None]
  - PATERNAL DRUGS AFFECTING FOETUS [None]
